FAERS Safety Report 14493313 (Version 5)
Quarter: 2019Q3

REPORT INFORMATION
  Report Type: Report from Study
  Country: US (occurrence: US)
  Receive Date: 20180206
  Receipt Date: 20190904
  Transmission Date: 20191004
  Serious: Yes (Other)
  Sender: FDA-Public Use
  Company Number: PHEH2018US004826

PATIENT
  Sex: Male

DRUGS (2)
  1. COSENTYX [Suspect]
     Active Substance: SECUKINUMAB
     Dosage: 150 MG, Q2W
     Route: 058
  2. COSENTYX [Suspect]
     Active Substance: SECUKINUMAB
     Indication: PSORIATIC ARTHROPATHY
     Dosage: 300 MG, QW
     Route: 058
     Dates: start: 20171001

REACTIONS (6)
  - Inappropriate schedule of product administration [Unknown]
  - Arthropathy [Unknown]
  - Arthritis [Unknown]
  - Arthralgia [Unknown]
  - Psoriasis [Unknown]
  - Psoriatic arthropathy [Unknown]
